FAERS Safety Report 18391085 (Version 3)
Quarter: 2020Q4

REPORT INFORMATION
  Report Type: Spontaneous
  Country: GB (occurrence: GB)
  Receive Date: 20201016
  Receipt Date: 20201102
  Transmission Date: 20210114
  Serious: Yes (Other)
  Sender: FDA-Public Use
  Company Number: GB-TORRENT-00024236

PATIENT
  Age: 77 Year
  Sex: Female
  Weight: 63 kg

DRUGS (3)
  1. FENOFIBRATE 160 MG FILM-COATED TABLETS [Suspect]
     Active Substance: FENOFIBRATE
     Indication: CARDIAC ARREST
     Dosage: AFTER FOOD AT NIGHT 7 PM
  2. ZOPICLONE [Concomitant]
     Active Substance: ZOPICLONE
     Indication: INSOMNIA
     Dosage: UNKNOWN
  3. DOSULEPIN HYDROCHLORIDE [Concomitant]
     Active Substance: DOTHIEPIN HYDROCHLORIDE
     Indication: ANXIETY
     Dosage: UNKNOWN

REACTIONS (2)
  - Foreign body in throat [Unknown]
  - Product size issue [Unknown]
